FAERS Safety Report 6283864-9 (Version None)
Quarter: 2009Q3

REPORT INFORMATION
  Report Type: 
  Country: None (occurrence: None)
  Receive Date: 20090723
  Receipt Date: 20090723
  Transmission Date: 20100115
  Serious: Yes (Hospitalization)
  Sender: FDA-Public Use
  Company Number: None

PATIENT
  Age: 70 Year
  Sex: Male
  Weight: 51.7101 kg

DRUGS (14)
  1. BEVACIZUMAB [Suspect]
     Indication: NON-SMALL CELL LUNG CANCER
     Dosage: 15 MG/KG IV
     Route: 042
     Dates: start: 20090331, end: 20090512
  2. ERLOTINIB [Suspect]
     Indication: NON-SMALL CELL LUNG CANCER
     Dosage: 100 MG PO
     Route: 048
     Dates: start: 20090331, end: 20090602
  3. MINOCYCLINE HCL [Concomitant]
  4. ENOXAPARIN SODIUM [Concomitant]
  5. MULTI-VITAMINS [Concomitant]
  6. LUBRIDERM DAILY MOISTURIZER TOPICAL LOTION [Concomitant]
  7. TARCEVA [Concomitant]
  8. XENADERM TOPICAL OINTMENT [Concomitant]
  9. ALPRAZOLAM [Concomitant]
  10. MAGNESIUM OXIDE [Concomitant]
  11. LACTOBACILLUS ACIDOPHILUS [Concomitant]
  12. PSYLLIUM [Concomitant]
  13. IMODIUM [Concomitant]
  14. FISH OIL [Concomitant]

REACTIONS (1)
  - PNEUMOTHORAX [None]
